FAERS Safety Report 18184285 (Version 1)
Quarter: 2020Q3

REPORT INFORMATION
  Report Type: Report from Study
  Country: None (occurrence: CA)
  Receive Date: 20200824
  Receipt Date: 20200824
  Transmission Date: 20201103
  Serious: Yes (Other)
  Sender: FDA-Public Use
  Company Number: CA-ABBVIE-20K-028-3534727-00

PATIENT
  Age: 70 Year
  Sex: Male

DRUGS (1)
  1. HUMIRA [Suspect]
     Active Substance: ADALIMUMAB
     Indication: RHEUMATOID ARTHRITIS
     Route: 058
     Dates: start: 20170316

REACTIONS (4)
  - Intestinal obstruction [Unknown]
  - Gait disturbance [Unknown]
  - Pain [Unknown]
  - Polyarthritis [Unknown]

NARRATIVE: CASE EVENT DATE: 202007
